FAERS Safety Report 8978843 (Version 1)
Quarter: 2012Q4

REPORT INFORMATION
  Report Type: Spontaneous
  Country: US (occurrence: None)
  Receive Date: 20121218
  Receipt Date: 20121218
  Transmission Date: 20130627
  Serious: Yes (Hospitalization)
  Sender: FDA-Public Use
  Company Number: None

PATIENT
  Age: 53 Year
  Sex: Female

DRUGS (5)
  1. WARFARIN [Suspect]
     Indication: MITRAL VALVE REPLACEMENT
     Dosage: 5 MG  QHS PO
iNDEFINITELY
     Route: 048
     Dates: start: 20051101, end: 20120928
  2. ALBUTEROL [Concomitant]
  3. ADVAIR [Concomitant]
  4. DOCUSATE AND SENNA [Concomitant]
  5. SIMVASTATIN [Concomitant]

REACTIONS (2)
  - Subdural haematoma [None]
  - International normalised ratio increased [None]
